FAERS Safety Report 5144252-1 (Version None)
Quarter: 2006Q4

REPORT INFORMATION
  Report Type: 
  Country: None (occurrence: None)
  Receive Date: 20061106
  Receipt Date: 20061023
  Transmission Date: 20070319
  Serious: Yes (Other)
  Sender: FDA-Public Use
  Company Number: US-PURDUE-USA_2006_0025482

PATIENT
  Sex: Male

DRUGS (2)
  1. OXYCODONE HCL [Suspect]
     Indication: PAIN
     Dosage: 160 MG, TID
     Dates: start: 20060701
  2. NORCO [Concomitant]
     Indication: BREAKTHROUGH PAIN
     Dosage: 10 MG, PRN
     Route: 048

REACTIONS (12)
  - ANXIETY [None]
  - ASTHENIA [None]
  - CONFUSIONAL STATE [None]
  - DIZZINESS [None]
  - DRUG WITHDRAWAL SYNDROME [None]
  - FEELING ABNORMAL [None]
  - HYPERHIDROSIS [None]
  - INTENTIONAL DRUG MISUSE [None]
  - PAIN [None]
  - PRURITUS [None]
  - SUICIDAL IDEATION [None]
  - WOUND [None]
